FAERS Safety Report 9553020 (Version 2)
Quarter: 2014Q2

REPORT INFORMATION
  Report Type: Spontaneous
  Country: US (occurrence: None)
  Receive Date: 20130507
  Receipt Date: 20140401
  Transmission Date: 20141212
  Serious: Yes (Other)
  Sender: FDA-Public Use
  Company Number: PHEH2012US013209

PATIENT
  Age: 51 Year
  Sex: Female

DRUGS (1)
  1. TASIGNA (AMN107) CAPSULE, 150 MG [Suspect]
     Indication: CHRONIC MYELOID LEUKAEMIA
     Route: 048
     Dates: start: 20120621

REACTIONS (3)
  - Pancreatitis [None]
  - Abdominal pain [None]
  - Gastric disorder [None]
